FAERS Safety Report 19371189 (Version 3)
Quarter: 2021Q4

REPORT INFORMATION
  Report Type: Report from Study
  Country: KR (occurrence: KR)
  Receive Date: 20210604
  Receipt Date: 20211117
  Transmission Date: 20220303
  Serious: Yes (Other)
  Sender: FDA-Public Use
  Company Number: KR-KYOWAKIRIN-2021AKK009288

PATIENT
  Age: 11 Year
  Sex: Male

DRUGS (85)
  1. FILGRASTIM [Suspect]
     Active Substance: FILGRASTIM
     Indication: Product used for unknown indication
     Dosage: UNK, QD (75)
     Route: 065
     Dates: start: 20170302, end: 20170302
  2. FILGRASTIM [Suspect]
     Active Substance: FILGRASTIM
     Dosage: UNK, QD (75)
     Route: 065
     Dates: start: 20170303, end: 20170303
  3. FILGRASTIM [Suspect]
     Active Substance: FILGRASTIM
     Dosage: UNK, QD (75)
     Route: 065
     Dates: start: 20170304, end: 20170305
  4. FILGRASTIM [Suspect]
     Active Substance: FILGRASTIM
     Dosage: UNK, QD (75)
     Route: 065
     Dates: start: 20170306, end: 20170307
  5. AMOXICILLIN [Concomitant]
     Active Substance: AMOXICILLIN
     Indication: Product used for unknown indication
     Dosage: 4 UNK, QD
     Route: 065
     Dates: start: 20170324, end: 20170330
  6. BENZYDAMINE [Concomitant]
     Active Substance: BENZYDAMINE
     Indication: Product used for unknown indication
     Dosage: UNK, QD
     Route: 065
     Dates: start: 20170302
  7. LEUCOVORIN CALCIUM [Concomitant]
     Active Substance: LEUCOVORIN CALCIUM
     Indication: Product used for unknown indication
     Dosage: 42 MILLIGRAM, QD
     Route: 065
     Dates: start: 20170312, end: 20170312
  8. LEUCOVORIN CALCIUM [Concomitant]
     Active Substance: LEUCOVORIN CALCIUM
     Dosage: 42 MILLIGRAM, QD
     Route: 065
     Dates: start: 20170314, end: 20170315
  9. LEUCOVORIN CALCIUM [Concomitant]
     Active Substance: LEUCOVORIN CALCIUM
     Dosage: 42 MILLIGRAM, QD
     Route: 065
     Dates: start: 20170319, end: 20170319
  10. LEUCOVORIN CALCIUM [Concomitant]
     Active Substance: LEUCOVORIN CALCIUM
     Dosage: 42 MILLIGRAM, QD
     Route: 065
     Dates: start: 20170324, end: 20170324
  11. LEUCOVORIN CALCIUM [Concomitant]
     Active Substance: LEUCOVORIN CALCIUM
     Dosage: 63 MILLIGRAM, QD
     Route: 065
     Dates: start: 20170316, end: 20170316
  12. LEUCOVORIN CALCIUM [Concomitant]
     Active Substance: LEUCOVORIN CALCIUM
     Dosage: 84 MILLIGRAM, QD
     Route: 065
     Dates: start: 20170313, end: 20170313
  13. LEUCOVORIN CALCIUM [Concomitant]
     Active Substance: LEUCOVORIN CALCIUM
     Dosage: 84 MILLIGRAM, QD
     Route: 065
     Dates: start: 20170314, end: 20170315
  14. LEUCOVORIN CALCIUM [Concomitant]
     Active Substance: LEUCOVORIN CALCIUM
     Dosage: 84 MILLIGRAM, QD
     Route: 065
     Dates: start: 20170320, end: 20170323
  15. LEUCOVORIN CALCIUM [Concomitant]
     Active Substance: LEUCOVORIN CALCIUM
     Dosage: 84 MILLIGRAM, QD
     Route: 065
     Dates: start: 20170324, end: 20170327
  16. CEFAZOLIN [Concomitant]
     Active Substance: CEFAZOLIN
     Indication: Product used for unknown indication
     Dosage: 2 UNK, QD
     Route: 065
     Dates: start: 20170329, end: 20170329
  17. CHLORHEXIDINE [Concomitant]
     Active Substance: CHLORHEXIDINE
     Indication: Product used for unknown indication
     Dosage: UNK, QD
     Route: 065
     Dates: start: 20170302
  18. CHLORPHENIRAMINE MALEATE [Concomitant]
     Active Substance: CHLORPHENIRAMINE MALEATE
     Indication: Product used for unknown indication
     Dosage: 1 UNK, QD
     Route: 065
     Dates: start: 20170302, end: 20170303
  19. CHLORPHENIRAMINE MALEATE [Concomitant]
     Active Substance: CHLORPHENIRAMINE MALEATE
     Dosage: 2 UNK, QD
     Route: 065
     Dates: start: 20170302, end: 20170302
  20. CISPLATIN [Concomitant]
     Active Substance: CISPLATIN
     Indication: Product used for unknown indication
     Dosage: 16 MILLIGRAM, QD
     Route: 065
     Dates: start: 20170330, end: 20170330
  21. CISPLATIN [Concomitant]
     Active Substance: CISPLATIN
     Dosage: 150 MILLIGRAM, QD
     Route: 065
     Dates: start: 20170330, end: 20170330
  22. DEXAMETHASONE [Concomitant]
     Active Substance: DEXAMETHASONE
     Indication: Product used for unknown indication
     Dosage: 1 UNK, QD
     Route: 065
     Dates: start: 20170330, end: 20170331
  23. DEXAMETHASONE [Concomitant]
     Active Substance: DEXAMETHASONE
     Dosage: 1 UNK, QD
     Route: 065
     Dates: start: 20170330, end: 20170330
  24. DEXRAZOXANE [Concomitant]
     Active Substance: DEXRAZOXANE
     Indication: Product used for unknown indication
     Dosage: 360 MILLIGRAM
     Route: 065
     Dates: start: 20170330, end: 20170402
  25. DOXORUBICIN [Concomitant]
     Active Substance: DOXORUBICIN
     Indication: Product used for unknown indication
     Dosage: 34 MILLIGRAM
     Route: 065
     Dates: start: 20170330, end: 20170402
  26. EPINEPHRINE [Concomitant]
     Active Substance: EPINEPHRINE
     Indication: Product used for unknown indication
     Dosage: UNK, QD
     Route: 065
     Dates: start: 20170405
  27. FLUOROMETHOLONE [Concomitant]
     Active Substance: FLUOROMETHOLONE
     Indication: Product used for unknown indication
     Dosage: UNK, QD
     Route: 065
     Dates: start: 20170320
  28. FUROSEMIDE [Concomitant]
     Active Substance: FUROSEMIDE
     Indication: Product used for unknown indication
     Dosage: 1 UNK, QD
     Route: 065
     Dates: start: 20170304, end: 20170304
  29. FUROSEMIDE [Concomitant]
     Active Substance: FUROSEMIDE
     Dosage: 1 UNK, QD
     Route: 065
     Dates: start: 20170317, end: 20170317
  30. FUROSEMIDE [Concomitant]
     Active Substance: FUROSEMIDE
     Dosage: 1 UNK, QD
     Route: 065
     Dates: start: 20170331, end: 20170331
  31. GRANISETRON [Concomitant]
     Active Substance: GRANISETRON
     Indication: Product used for unknown indication
     Dosage: 3 MILLIGRAM, QD
     Route: 065
     Dates: start: 20170311, end: 20170311
  32. GRANISETRON [Concomitant]
     Active Substance: GRANISETRON
     Dosage: 3 MILLIGRAM, QD
     Route: 065
     Dates: start: 20170318, end: 20170318
  33. HEPARIN [Concomitant]
     Active Substance: HEPARIN SODIUM
     Indication: Product used for unknown indication
     Dosage: 1 UNK, QD
     Route: 065
     Dates: start: 20170329, end: 20170403
  34. LEVOFLOXACIN [Concomitant]
     Active Substance: LEVOFLOXACIN
     Indication: Product used for unknown indication
     Dosage: UNK, QD
     Route: 065
     Dates: start: 20170320
  35. MAGNESIUM SULFATE [Concomitant]
     Active Substance: MAGNESIUM SULFATE
     Indication: Product used for unknown indication
     Dosage: 10 UNK, QD
     Route: 065
     Dates: start: 20170329, end: 20170329
  36. MAGNESIUM SULFATE [Concomitant]
     Active Substance: MAGNESIUM SULFATE
     Dosage: 10 UNK, QD
     Route: 065
     Dates: start: 20170330, end: 20170331
  37. MANNITOL [Concomitant]
     Active Substance: MANNITOL
     Indication: Product used for unknown indication
     Dosage: 278 UNK, QD
     Route: 065
     Dates: start: 20170330, end: 20170330
  38. METHOTREXATE [Concomitant]
     Active Substance: METHOTREXATE
     Indication: Product used for unknown indication
     Dosage: 2 UNK, QD
     Route: 065
     Dates: start: 20170311, end: 20170311
  39. METHOTREXATE [Concomitant]
     Active Substance: METHOTREXATE
     Dosage: 2 UNK, QD
     Route: 065
     Dates: start: 20170318, end: 20170318
  40. METHOTREXATE [Concomitant]
     Active Substance: METHOTREXATE
     Dosage: 2 UNK, QD
     Route: 065
     Dates: start: 20170311, end: 20170311
  41. METHOTREXATE [Concomitant]
     Active Substance: METHOTREXATE
     Dosage: 2 UNK, QD
     Route: 065
     Dates: start: 20170318, end: 20170318
  42. MUPIROCIN [Concomitant]
     Active Substance: MUPIROCIN
     Indication: Product used for unknown indication
     Dosage: UNK, QD
     Route: 065
     Dates: start: 20170315
  43. NYSTATIN [Concomitant]
     Active Substance: NYSTATIN
     Indication: Product used for unknown indication
     Dosage: UNK, QD
     Route: 065
     Dates: start: 20170330
  44. OLOPATADINE [Concomitant]
     Active Substance: OLOPATADINE
     Indication: Product used for unknown indication
     Dosage: UNK, QD
     Route: 065
     Dates: start: 20170315
  45. ONDANSETRON [Concomitant]
     Active Substance: ONDANSETRON
     Indication: Product used for unknown indication
     Dosage: 8 MILLIGRAM, QD
     Route: 065
     Dates: start: 20170324, end: 20170324
  46. ONDANSETRON [Concomitant]
     Active Substance: ONDANSETRON
     Dosage: 8 MILLIGRAM, QD
     Route: 065
     Dates: start: 20170331, end: 20170331
  47. ONDANSETRON [Concomitant]
     Active Substance: ONDANSETRON
     Dosage: 0.9 MILLIGRAM, QD
     Route: 065
     Dates: start: 20170311, end: 20170311
  48. PALONOSETRON [Concomitant]
     Active Substance: PALONOSETRON
     Indication: Product used for unknown indication
     Dosage: 0.9 MILLIGRAM, QD
     Route: 065
     Dates: start: 20170318, end: 20170318
  49. PALONOSETRON [Concomitant]
     Active Substance: PALONOSETRON
     Dosage: 1 MILLIGRAM, QD
     Route: 065
     Dates: start: 20170430, end: 20170430
  50. PALONOSETRON [Concomitant]
     Active Substance: PALONOSETRON
     Dosage: 1 MILLIGRAM, QD
     Route: 065
     Dates: start: 20170401, end: 20170401
  51. PENTAMIDINE ISETHIONATE [Concomitant]
     Active Substance: PENTAMIDINE ISETHIONATE
     Indication: Product used for unknown indication
     Dosage: 1 UNK, QD
     Route: 065
     Dates: start: 20170320, end: 20170320
  52. PENTAMIDINE ISETHIONATE [Concomitant]
     Active Substance: PENTAMIDINE ISETHIONATE
     Dosage: 1 UNK, QD
     Route: 065
     Dates: start: 20170324, end: 20170324
  53. PIPERACILLIN [Concomitant]
     Active Substance: PIPERACILLIN
     Indication: Product used for unknown indication
     Dosage: 8.6 UNK, QD
     Route: 065
     Dates: start: 20170302, end: 20170302
  54. PIPERACILLIN [Concomitant]
     Active Substance: PIPERACILLIN
     Dosage: 8.6 UNK, QD
     Route: 065
     Dates: start: 20170307, end: 20170307
  55. PIPERACILLIN [Concomitant]
     Active Substance: PIPERACILLIN
     Dosage: 8.6 UNK, QD
     Route: 065
     Dates: start: 20170303, end: 20170306
  56. POTASSIUM CHLORIDE [Concomitant]
     Active Substance: POTASSIUM CHLORIDE
     Indication: Product used for unknown indication
     Dosage: 20 UNK, QD
     Route: 065
     Dates: start: 20170311, end: 20170311
  57. POTASSIUM CHLORIDE [Concomitant]
     Active Substance: POTASSIUM CHLORIDE
     Dosage: 30 UNK, QD
     Route: 065
     Dates: start: 20170312, end: 20170324
  58. POVIDONE-IODINE [Concomitant]
     Active Substance: POVIDONE-IODINE
     Indication: Product used for unknown indication
     Dosage: 1 UNK, QD
     Route: 065
     Dates: start: 20170218
  59. PROPACETAMOL [Concomitant]
     Active Substance: PROPACETAMOL
     Indication: Product used for unknown indication
     Dosage: 1 UNK, QD
     Route: 065
     Dates: start: 20170320, end: 20170320
  60. PROPACETAMOL [Concomitant]
     Active Substance: PROPACETAMOL
     Dosage: 1 UNK, QD
     Route: 065
     Dates: start: 20170302, end: 20170306
  61. PROPACETAMOL [Concomitant]
     Active Substance: PROPACETAMOL
     Dosage: 1 UNK, QD
     Route: 065
     Dates: start: 20170322, end: 20170322
  62. RANITIDINE [Concomitant]
     Active Substance: RANITIDINE
     Indication: Product used for unknown indication
     Dosage: 40 MILLIGRAM, QD
     Route: 065
     Dates: start: 20170330, end: 20170330
  63. RANITIDINE [Concomitant]
     Active Substance: RANITIDINE
     Dosage: 40 MILLIGRAM, QD
     Route: 065
     Dates: start: 20170403, end: 20170403
  64. RANITIDINE [Concomitant]
     Active Substance: RANITIDINE
     Dosage: 80 MILLIGRAM, QD
     Route: 065
     Dates: start: 20170331, end: 20170402
  65. SODIUM BICARBONATE [Concomitant]
     Active Substance: SODIUM BICARBONATE
     Indication: Product used for unknown indication
     Dosage: 48 UNK, QD
     Route: 065
     Dates: start: 20170310
  66. SODIUM BICARBONATE [Concomitant]
     Active Substance: SODIUM BICARBONATE
     Dosage: UNK, QD
     Route: 065
     Dates: start: 20170315
  67. SODIUM BICARBONATE [Concomitant]
     Active Substance: SODIUM BICARBONATE
     Dosage: 48 UNK, QD
     Route: 065
     Dates: start: 20170311, end: 20170311
  68. SODIUM BICARBONATE [Concomitant]
     Active Substance: SODIUM BICARBONATE
     Dosage: 48 UNK, QD
     Route: 065
     Dates: start: 20170317, end: 20170317
  69. SODIUM BICARBONATE [Concomitant]
     Active Substance: SODIUM BICARBONATE
     Dosage: 48 UNK, QD
     Route: 065
     Dates: start: 20170318, end: 20170318
  70. SODIUM BICARBONATE [Concomitant]
     Active Substance: SODIUM BICARBONATE
     Dosage: 48 UNK, QD
     Route: 065
     Dates: start: 20170312, end: 20170316
  71. SODIUM BICARBONATE [Concomitant]
     Active Substance: SODIUM BICARBONATE
     Dosage: 48 UNK, QD
     Route: 065
     Dates: start: 20170319, end: 20170323
  72. SODIUM CHLORIDE [Concomitant]
     Active Substance: SODIUM CHLORIDE
     Indication: Product used for unknown indication
     Dosage: 8.5 UNK, QD
     Route: 065
     Dates: start: 20170329, end: 20170329
  73. SODIUM CHLORIDE [Concomitant]
     Active Substance: SODIUM CHLORIDE
     Dosage: 8.5 UNK, QD
     Route: 065
     Dates: start: 20170310, end: 20170310
  74. SODIUM CHLORIDE [Concomitant]
     Active Substance: SODIUM CHLORIDE
     Dosage: 8.5 UNK, QD
     Route: 065
     Dates: start: 20170317, end: 20170317
  75. SODIUM CHLORIDE [Concomitant]
     Active Substance: SODIUM CHLORIDE
     Dosage: 8.5 UNK, QD
     Route: 065
     Dates: start: 20170311, end: 20170311
  76. SODIUM CHLORIDE [Concomitant]
     Active Substance: SODIUM CHLORIDE
     Dosage: 8.5 UNK, QD
     Route: 065
     Dates: start: 20170318, end: 20170318
  77. TEICOPLANIN [Concomitant]
     Active Substance: TEICOPLANIN
     Indication: Product used for unknown indication
     Dosage: 400 MILLIGRAM, QD
     Route: 065
     Dates: start: 20170305, end: 20170305
  78. TEICOPLANIN [Concomitant]
     Active Substance: TEICOPLANIN
     Dosage: 400 MILLIGRAM, QD
     Route: 065
     Dates: start: 20170307, end: 20170307
  79. TEICOPLANIN [Concomitant]
     Active Substance: TEICOPLANIN
     Dosage: 800 MILLIGRAM, QD
     Route: 065
     Dates: start: 20170306, end: 20170306
  80. THIOSULFATE [Concomitant]
     Indication: Product used for unknown indication
     Dosage: 12.5 UNK, QD
     Route: 065
     Dates: start: 20170330, end: 20170330
  81. TRIPTORELIN [Concomitant]
     Active Substance: TRIPTORELIN
     Indication: Product used for unknown indication
     Dosage: 3.75 MILLIGRAM, QD
     Route: 065
     Dates: start: 20170321, end: 20170321
  82. URSODIOL [Concomitant]
     Active Substance: URSODIOL
     Indication: Product used for unknown indication
     Dosage: 200 MILLIGRAM, QD
     Route: 065
     Dates: start: 20170321, end: 20170321
  83. URSODIOL [Concomitant]
     Active Substance: URSODIOL
     Dosage: 200 MILLIGRAM, QD
     Route: 065
     Dates: start: 20170324, end: 20170324
  84. URSODIOL [Concomitant]
     Active Substance: URSODIOL
     Dosage: 600 MILLIGRAM, QD
     Route: 065
     Dates: start: 20170322, end: 20170323
  85. ZINC SULFATE [Concomitant]
     Active Substance: ZINC SULFATE
     Indication: Product used for unknown indication
     Dosage: 12 UNK, QD
     Route: 065
     Dates: start: 20170312, end: 20170312

REACTIONS (8)
  - Haematemesis [Recovered/Resolved]
  - Blood pressure increased [Recovered/Resolved]
  - Epistaxis [Recovered/Resolved]
  - Anaemia [Recovered/Resolved]
  - Platelet count decreased [Recovered/Resolved]
  - Headache [Recovered/Resolved]
  - Hypersensitivity [Recovered/Resolved]
  - Pyrexia [Recovered/Resolved]

NARRATIVE: CASE EVENT DATE: 20170405
